FAERS Safety Report 21796126 (Version 2)
Quarter: 2023Q2

REPORT INFORMATION
  Report Type: Spontaneous
  Country: AU (occurrence: AU)
  Receive Date: 20221229
  Receipt Date: 20230424
  Transmission Date: 20230721
  Serious: Yes (Hospitalization, Other)
  Sender: FDA-Public Use
  Company Number: AU-TEVA-2022-AU-2841544

PATIENT
  Age: 46 Year
  Sex: Male

DRUGS (24)
  1. ARIPIPRAZOLE [Suspect]
     Active Substance: ARIPIPRAZOLE
     Indication: Schizoaffective disorder
     Dosage: DOSE: 20MILLIGRAM, INTERVAL:  1 DAY
     Route: 065
  2. ARIPIPRAZOLE [Suspect]
     Active Substance: ARIPIPRAZOLE
     Indication: Schizophrenia
  3. AMLODIPINE BESYLATE [Suspect]
     Active Substance: AMLODIPINE BESYLATE
     Indication: Hypertension
     Dosage: DOSE: 10MILLIGRAM, INTERVAL: 1 DAY
     Route: 065
  4. ATORVASTATIN CALCIUM [Suspect]
     Active Substance: ATORVASTATIN CALCIUM
     Indication: Dyslipidaemia
     Dosage: 20 MILLIGRAM DAILY; INTERVAL: 1 DAY
     Route: 065
  5. BENZTROPINE MESYLATE [Suspect]
     Active Substance: BENZTROPINE MESYLATE
     Indication: Product used for unknown indication
     Dosage: DOSE: 2MIILLIGRAM, INTERVAL: 1 DAY
     Route: 065
  6. FUROSEMIDE [Suspect]
     Active Substance: FUROSEMIDE
     Indication: Hypertension
     Dosage: DOSE: 20MILLIGRAM, INTERVAL: 1 DAY
     Route: 065
  7. LITHIUM CARBONATE [Suspect]
     Active Substance: LITHIUM CARBONATE
     Indication: Schizoaffective disorder
     Dosage: 500 MILLIGRAM DAILY;
     Route: 065
  8. LITHIUM CARBONATE [Suspect]
     Active Substance: LITHIUM CARBONATE
     Indication: Schizophrenia
     Dosage: DOSE: 250MILLIGRAM, INTERVAL: 12 HOUR
     Route: 065
  9. MELATONIN [Suspect]
     Active Substance: MELATONIN
     Indication: Product used for unknown indication
     Dosage: DOSE: 4 MILLIGRAM, INTERVAL: 1 DAY
     Route: 065
  10. METOPROLOL [Suspect]
     Active Substance: METOPROLOL
     Indication: Hypertension
     Dosage: 50 MILLIGRAM DAILY;
     Route: 065
  11. METOPROLOL [Suspect]
     Active Substance: METOPROLOL
     Dosage: DOSE: 25 MILLIGRAM , INTERVAL: 12 HOUR
     Route: 065
  12. PRAZOSIN [Suspect]
     Active Substance: PRAZOSIN
     Indication: Hypertension
     Dosage: DOSE: 1 MILLIGRAM, INTERVAL: 1 DAY
     Route: 065
  13. QUETIAPINE [Suspect]
     Active Substance: QUETIAPINE
     Indication: Schizoaffective disorder
     Dosage: DOSE: 300 MILLIGRAM
     Route: 065
  14. QUETIAPINE [Suspect]
     Active Substance: QUETIAPINE
     Dosage: DOSE: 200 MILLIGRAM, INTERVAL: 1 DAY
     Route: 065
  15. QUETIAPINE [Suspect]
     Active Substance: QUETIAPINE
     Indication: Schizoaffective disorder
     Dosage: DOSE: 200 MILLIGRAM
     Route: 065
  16. RYZODEG 70/30 [Suspect]
     Active Substance: INSULIN ASPART\INSULIN DEGLUDEC
     Indication: Type 1 diabetes mellitus
     Route: 065
  17. RYZODEG 70/30 [Suspect]
     Active Substance: INSULIN ASPART\INSULIN DEGLUDEC
     Indication: Diabetes mellitus inadequate control
  18. VALPROATE SODIUM [Suspect]
     Active Substance: VALPROATE SODIUM
     Indication: Schizoaffective disorder
     Dosage: 2 GRAM DAILY;
     Route: 065
  19. VALPROATE SODIUM [Suspect]
     Active Substance: VALPROATE SODIUM
     Indication: Schizophrenia
     Dosage: DOSE: 1 GRAM , INTERVAL: 12 HOUR
     Route: 065
  20. BENZTROPINE MESYLATE [Suspect]
     Active Substance: BENZTROPINE MESYLATE
     Indication: Product used for unknown indication
     Dosage: DOSE: 2MIILLIGRAM, INTERVAL: 1 DAY
     Route: 065
  21. PRAZOSIN HYDROCHLORIDE [Suspect]
     Active Substance: PRAZOSIN HYDROCHLORIDE
     Indication: Product used for unknown indication
     Dosage: DOSE: 1 MILLIGRAM, INTERVAL: 1 DAY
     Route: 065
  22. QUETIAPINE [Suspect]
     Active Substance: QUETIAPINE
     Indication: Product used for unknown indication
     Dosage: DOSE: 300 MILLIGRAM, INTERVAL: 1 DAY
     Route: 065
  23. QUETIAPINE FUMARATE [Suspect]
     Active Substance: QUETIAPINE FUMARATE
     Indication: Schizophrenia
     Dosage: DOSE: 200 MILLIGRAM, INTERVAL: 1 DAY
     Route: 065
  24. QUETIAPINE FUMARATE [Suspect]
     Active Substance: QUETIAPINE FUMARATE
     Indication: Product used for unknown indication
     Dosage: DOSE: 300 MILLIGRAM, INTERVAL: 1 DAY
     Route: 065

REACTIONS (25)
  - Hyperkalaemia [Unknown]
  - Cardiac dysfunction [Unknown]
  - Blood albumin decreased [Unknown]
  - Blood alkaline phosphatase increased [Unknown]
  - Blood cholesterol increased [Unknown]
  - Blood glucose increased [Unknown]
  - Blood thyroid stimulating hormone increased [Unknown]
  - Blood urea increased [Unknown]
  - Drug level therapeutic [Unknown]
  - Echocardiogram abnormal [Unknown]
  - Globulins increased [Unknown]
  - Haemoglobin decreased [Unknown]
  - Left atrial dilatation [Unknown]
  - Neutrophil count increased [Unknown]
  - Non-high-density lipoprotein cholesterol increased [Unknown]
  - Red blood cell count decreased [Unknown]
  - Red cell distribution width increased [Unknown]
  - Systolic dysfunction [Unknown]
  - Thyroxine decreased [Unknown]
  - Tri-iodothyronine decreased [Unknown]
  - Troponin T increased [Unknown]
  - Left ventricular dysfunction [Unknown]
  - Drug ineffective [Unknown]
  - Incorrect dose administered [Unknown]
  - Product administered to patient of inappropriate age [Unknown]

NARRATIVE: CASE EVENT DATE: 20220101
